FAERS Safety Report 8570074-5 (Version None)
Quarter: 2012Q3

REPORT INFORMATION
  Report Type: 
  Country: None (occurrence: None)
  Receive Date: 20120803
  Receipt Date: 20120224
  Transmission Date: 20120928
  Serious: No
  Sender: FDA-Public Use
  Company Number: US-ABBOTT-12P-163-0908916-00

PATIENT
  Sex: Female
  Weight: 81.72 kg

DRUGS (4)
  1. VITAMIN D [Concomitant]
     Indication: PRODUCT USED FOR UNKNOWN INDICATION
  2. NIASPAN [Suspect]
     Indication: PRODUCT USED FOR UNKNOWN INDICATION
     Dosage: 2 TABS, AT BEDTIME
     Dates: start: 20040101
  3. ZETIA [Concomitant]
     Indication: PRODUCT USED FOR UNKNOWN INDICATION
  4. THYROID TAB [Concomitant]
     Indication: PRODUCT USED FOR UNKNOWN INDICATION

REACTIONS (2)
  - MUSCULAR WEAKNESS [None]
  - MYALGIA [None]
